FAERS Safety Report 9705782 (Version 2)
Quarter: 2013Q4

REPORT INFORMATION
  Report Type: Spontaneous
  Country: US (occurrence: US)
  Receive Date: 20131122
  Receipt Date: 20131122
  Transmission Date: 20140711
  Serious: No
  Sender: FDA-Public Use
  Company Number: US-GILEAD-2008-0017674

PATIENT
  Sex: Female
  Weight: 70.31 kg

DRUGS (17)
  1. LETAIRIS [Suspect]
     Indication: PULMONARY ARTERIAL HYPERTENSION
     Route: 048
     Dates: start: 20080716, end: 20080731
  2. FOLIC ACID [Concomitant]
     Dosage: AS DIRECTED
     Route: 048
  3. DIAZEPAM [Concomitant]
     Dosage: AS DIRECTED
     Route: 048
  4. VITAMIN C [Concomitant]
     Dosage: AS DIRECTED
     Route: 048
  5. ATENOLOL [Concomitant]
     Dosage: AS DIRECTED
     Route: 048
  6. AMBIEN [Concomitant]
     Dosage: AS DIRECTED
     Route: 048
  7. LASIX [Concomitant]
     Dosage: AS DIRECTED
     Route: 048
  8. ALTACE [Concomitant]
     Dosage: AS DIRECTED
     Route: 048
  9. IPRATROPIUM SPRAY [Concomitant]
     Dosage: AS DIRECTED
     Route: 045
  10. COUMADIN [Concomitant]
     Dosage: AS DIRECTED
     Route: 048
  11. GLYBURIDE [Concomitant]
     Dosage: AS DIRECTED
     Route: 048
  12. DIGOXIN [Concomitant]
     Dosage: AS DIRECTED
     Route: 048
  13. FIBER LAXATIVE [Concomitant]
     Dosage: AS DIRECTED
     Route: 048
  14. LEVOTHYROXINE [Concomitant]
     Dosage: AS DIRECTED
     Route: 048
  15. VITAMIN D [Concomitant]
     Dosage: AS DIRECTED
     Route: 048
  16. LORTAB [Concomitant]
     Dosage: AS DIRECTED
     Route: 048
  17. PREDNISONE [Concomitant]
     Dosage: AS DIRECTED
     Route: 048

REACTIONS (3)
  - Malaise [None]
  - Asthenia [None]
  - Dyspnoea [None]
